FAERS Safety Report 17484106 (Version 3)
Quarter: 2020Q2

REPORT INFORMATION
  Report Type: Spontaneous
  Country: US (occurrence: US)
  Receive Date: 20200302
  Receipt Date: 20200408
  Transmission Date: 20200713
  Serious: Yes (Hospitalization)
  Sender: FDA-Public Use
  Company Number: US-CELGENEUS-USA-20200210122

PATIENT
  Sex: Male
  Weight: 57.66 kg

DRUGS (1)
  1. REVLIMID [Suspect]
     Active Substance: LENALIDOMIDE
     Indication: PLASMA CELL MYELOMA
     Dosage: 15 MILLIGRAM
     Route: 048
     Dates: start: 20200205

REACTIONS (6)
  - Asthenia [Not Recovered/Not Resolved]
  - Decreased appetite [Not Recovered/Not Resolved]
  - Haemoglobin decreased [Not Recovered/Not Resolved]
  - Hepatitis B [Recovered/Resolved with Sequelae]
  - Chronic obstructive pulmonary disease [Recovered/Resolved with Sequelae]
  - Taste disorder [Recovered/Resolved with Sequelae]

NARRATIVE: CASE EVENT DATE: 2020
